FAERS Safety Report 25505874 (Version 1)
Quarter: 2025Q3

REPORT INFORMATION
  Report Type: Spontaneous
  Country: US (occurrence: US)
  Receive Date: 20250702
  Receipt Date: 20250702
  Transmission Date: 20251021
  Serious: No
  Sender: DR REDDYS
  Company Number: US-DRL-USA-USA/2025/06/008753

PATIENT
  Age: 91 Year
  Sex: Female

DRUGS (1)
  1. FLUOROURACIL [Suspect]
     Active Substance: FLUOROURACIL
     Indication: Basal cell carcinoma
     Dosage: 5%
     Route: 065

REACTIONS (3)
  - Wound [Not Recovered/Not Resolved]
  - Inappropriate schedule of product administration [Unknown]
  - Skin exfoliation [Unknown]
